FAERS Safety Report 6426385-2 (Version None)
Quarter: 2009Q4

REPORT INFORMATION
  Report Type: 
  Country: None (occurrence: None)
  Receive Date: 20091030
  Receipt Date: 20091021
  Transmission Date: 20100525
  Serious: Yes (Other)
  Sender: FDA-Public Use
  Company Number: 09TR004515

PATIENT
  Age: 45 Year
  Sex: Male

DRUGS (4)
  1. NAPROXEN SODIUM [Suspect]
     Indication: SUICIDE ATTEMPT
     Dosage: 2200 MG, SINGLE, ORAL
     Route: 048
  2. AMLODIPINE [Suspect]
     Indication: SUICIDE ATTEMPT
     Dosage: 20 MG, SINGLE, ORAL
     Route: 048
  3. ALCOHOL (ETHANOL) [Suspect]
     Indication: SUICIDE ATTEMPT
     Dosage: 500 ML
  4. COLCHICINE (COLCHICINE) [Suspect]
     Indication: SUICIDE ATTEMPT
     Dosage: 5 MG, SINGLE, ORAL
     Route: 048

REACTIONS (9)
  - ALCOHOL USE [None]
  - BLOOD CALCIUM DECREASED [None]
  - BLOOD LACTATE DEHYDROGENASE INCREASED [None]
  - CHROMATURIA [None]
  - LEUKOCYTOSIS [None]
  - MULTIPLE DRUG OVERDOSE INTENTIONAL [None]
  - PARAESTHESIA [None]
  - PSYCHOTIC DISORDER DUE TO A GENERAL MEDICAL CONDITION [None]
  - SUICIDE ATTEMPT [None]
